FAERS Safety Report 9161120 (Version 1)
Quarter: 2013Q1

REPORT INFORMATION
  Report Type: Spontaneous
  Country: US (occurrence: US)
  Receive Date: 20130313
  Receipt Date: 20130313
  Transmission Date: 20140127
  Serious: Yes (Death, Hospitalization, Other)
  Sender: FDA-Public Use
  Company Number: CHPA2013US004291

PATIENT
  Age: 70 Year
  Sex: Male

DRUGS (1)
  1. BENEFIBER STICK PACKS [Suspect]
     Indication: GASTROINTESTINAL DISORDER
     Dosage: UNK, UNK
     Route: 048
     Dates: start: 1998, end: 201004

REACTIONS (5)
  - Clostridium difficile infection [Fatal]
  - Oesophageal carcinoma [Unknown]
  - Nodule [Unknown]
  - Faecaloma [Unknown]
  - Aphagia [Unknown]
